FAERS Safety Report 18046366 (Version 5)
Quarter: 2020Q4

REPORT INFORMATION
  Report Type: Report from Study
  Country: US (occurrence: US)
  Receive Date: 20200721
  Receipt Date: 20201211
  Transmission Date: 20210113
  Serious: No
  Sender: FDA-Public Use
  Company Number: NVSC2020US203245

PATIENT
  Sex: Female

DRUGS (2)
  1. PIQRAY [Suspect]
     Active Substance: ALPELISIB
     Indication: PRODUCT USED FOR UNKNOWN INDICATION
     Dosage: UNK
     Route: 048
  2. PIQRAY [Suspect]
     Active Substance: ALPELISIB
     Dosage: 150 MG (WILL GO TO 200 ONCE DELIVERED BY NPAF)
     Route: 065

REACTIONS (18)
  - Blood potassium decreased [Unknown]
  - Myalgia [Unknown]
  - Muscle spasms [Unknown]
  - Protein total abnormal [Unknown]
  - Taste disorder [Unknown]
  - Alopecia [Unknown]
  - Blood glucose increased [Unknown]
  - Asthenia [Unknown]
  - Rash pruritic [Unknown]
  - Incoherent [Unknown]
  - Rash [Unknown]
  - Diarrhoea [Unknown]
  - Weight decreased [Unknown]
  - Blood electrolytes abnormal [Unknown]
  - Mobility decreased [Unknown]
  - Irritable bowel syndrome [Unknown]
  - Decreased appetite [Unknown]
  - Dehydration [Unknown]
